FAERS Safety Report 7496119-1 (Version None)
Quarter: 2011Q2

REPORT INFORMATION
  Report Type: 
  Country: None (occurrence: None)
  Receive Date: 20110523
  Receipt Date: 20110511
  Transmission Date: 20111010
  Serious: Yes (Life-Threatening, Hospitalization, Other)
  Sender: FDA-Public Use
  Company Number: PHHY2011FR34380

PATIENT
  Sex: Male
  Weight: 89 kg

DRUGS (9)
  1. CORDARONE [Concomitant]
     Dosage: 1 DF, UNK
     Dates: start: 20100101, end: 20110413
  2. AMLODIPINE BESYLATE [Concomitant]
     Dosage: 10 MG DAILY
     Dates: start: 20100101
  3. TASIGNA [Suspect]
     Dosage: 400 MG, BID
     Route: 048
     Dates: start: 20100205, end: 20110413
  4. CLINDAMYCIN HCL [Suspect]
     Indication: OSTEOMYELITIS
     Dosage: 2.4 G DAILY
     Dates: start: 20110408
  5. ASPIRIN [Concomitant]
     Dosage: 75 MG DAILY
     Dates: end: 20110408
  6. ATORVASTATIN [Concomitant]
     Dosage: 10 MG DAILY
     Dates: start: 20100101, end: 20110413
  7. FUCIDINE CAP [Suspect]
     Indication: OSTEOMYELITIS
     Dosage: 1.5 G DAILY
     Dates: start: 20110408
  8. RABEPRAZOLE SODIUM [Concomitant]
     Dosage: 10 MG DAILY
     Dates: start: 20100101, end: 20110413
  9. PLAVIX [Concomitant]
     Dosage: 75 MG, UNK
     Dates: start: 20110408, end: 20110413

REACTIONS (11)
  - BLOOD UREA INCREASED [None]
  - SKIN ULCER [None]
  - BLOOD CREATINE PHOSPHOKINASE INCREASED [None]
  - BLOOD CREATININE INCREASED [None]
  - PULMONARY OEDEMA [None]
  - RENAL FAILURE ACUTE [None]
  - URINE OUTPUT DECREASED [None]
  - STAPHYLOCOCCAL OSTEOMYELITIS [None]
  - SINUS BRADYCARDIA [None]
  - HAEMOGLOBIN DECREASED [None]
  - BLOOD POTASSIUM INCREASED [None]
